FAERS Safety Report 11331357 (Version 2)
Quarter: 2015Q3

REPORT INFORMATION
  Report Type: Spontaneous
  Country: JP (occurrence: JP)
  Receive Date: 20150803
  Receipt Date: 20150810
  Transmission Date: 20151125
  Serious: Yes (Hospitalization, Other)
  Sender: FDA-Public Use
  Company Number: JP-UCBSA-2015022406

PATIENT
  Age: 39 Year
  Sex: Male

DRUGS (18)
  1. KEPPRA [Suspect]
     Active Substance: LEVETIRACETAM
     Dosage: 1000 MG, ONCE DAILY (QD)
     Route: 048
     Dates: start: 20110222, end: 20110627
  2. KEPPRA [Suspect]
     Active Substance: LEVETIRACETAM
     Dosage: 500 MG DAILY
     Route: 048
     Dates: start: 20150413, end: 20150601
  3. DEPAKENE [Suspect]
     Active Substance: VALPROIC ACID
     Dosage: 200 MG DAILY
     Route: 048
     Dates: start: 20110308, end: 20110321
  4. DEPAKENE [Suspect]
     Active Substance: VALPROIC ACID
     Dosage: 800 MG DAILY
     Route: 048
     Dates: start: 20110628, end: 20111017
  5. DEPAKENE [Suspect]
     Active Substance: VALPROIC ACID
     Dosage: 400 MG DAILY
     Route: 048
     Dates: start: 20150207, end: 20150601
  6. KEPPRA [Suspect]
     Active Substance: LEVETIRACETAM
     Dosage: 2000 MG DAILY
     Route: 048
     Dates: start: 20150407, end: 20150412
  7. KEPPRA [Suspect]
     Active Substance: LEVETIRACETAM
     Indication: EPILEPSY
     Dosage: 500 MG, ONCE DAILY (QD)
     Route: 048
     Dates: start: 20110209, end: 20110221
  8. KEPPRA [Suspect]
     Active Substance: LEVETIRACETAM
     Dosage: 2000 MG DAILY
     Route: 048
     Dates: start: 20110628, end: 20111017
  9. KEPPRA [Suspect]
     Active Substance: LEVETIRACETAM
     Dosage: 1000 MG DAILY
     Route: 048
     Dates: start: 20111018, end: 20150406
  10. KEPPRA [Suspect]
     Active Substance: LEVETIRACETAM
     Dosage: 2500 MG DAILY
     Route: 048
     Dates: start: 20150602, end: 20150630
  11. DEPAKENE [Suspect]
     Active Substance: VALPROIC ACID
     Dosage: 400 MG DAILY
     Route: 048
     Dates: start: 20111018
  12. ALCOHOL. [Suspect]
     Active Substance: ALCOHOL
     Indication: PRODUCT USED FOR UNKNOWN INDICATION
     Dosage: 270 CC PER DAY
  13. DEPAKENE [Suspect]
     Active Substance: VALPROIC ACID
     Indication: EPILEPSY
     Dosage: 800MG DAILY
     Route: 048
     Dates: start: 20110201, end: 20110221
  14. DEPAKENE [Suspect]
     Active Substance: VALPROIC ACID
     Dosage: 400 MG DAILY
     Route: 048
     Dates: start: 20110613, end: 20110627
  15. DEPAKENE [Suspect]
     Active Substance: VALPROIC ACID
     Dosage: UNK
  16. ALCOHOL. [Suspect]
     Active Substance: ALCOHOL
     Dosage: UNK
  17. DEPAKENE [Suspect]
     Active Substance: VALPROIC ACID
     Dosage: 400 MG DAILY
     Route: 048
     Dates: start: 20110222, end: 20110307
  18. DEPAKENE [Suspect]
     Active Substance: VALPROIC ACID
     Dosage: 200 MG DAILY
     Route: 048
     Dates: start: 20150602, end: 20150630

REACTIONS (1)
  - Pancreatitis acute [Recovering/Resolving]

NARRATIVE: CASE EVENT DATE: 20150630
